FAERS Safety Report 24125263 (Version 6)
Quarter: 2025Q3

REPORT INFORMATION
  Report Type: Report from Study
  Country: US (occurrence: US)
  Receive Date: 20240723
  Receipt Date: 20250711
  Transmission Date: 20251021
  Serious: Yes (Other)
  Sender: CSL BEHRING
  Company Number: US-BEH-2024175946

PATIENT
  Age: 85 Year
  Sex: Female
  Weight: 79.4 kg

DRUGS (24)
  1. HIZENTRA [Suspect]
     Active Substance: HUMAN IMMUNOGLOBULIN G
     Indication: Immunodeficiency common variable
     Dosage: 8 G, QW
     Route: 058
  2. HIZENTRA [Suspect]
     Active Substance: HUMAN IMMUNOGLOBULIN G
     Route: 065
  3. HIZENTRA [Suspect]
     Active Substance: HUMAN IMMUNOGLOBULIN G
     Dosage: 8 G, QW
     Route: 058
  4. HIZENTRA [Suspect]
     Active Substance: HUMAN IMMUNOGLOBULIN G
     Dosage: 8 G, QW (4MG/20ML)
     Route: 058
     Dates: start: 2014
  5. HIZENTRA [Suspect]
     Active Substance: HUMAN IMMUNOGLOBULIN G
     Dosage: 8 G, QW (4MG/20ML)
     Route: 058
     Dates: start: 2014
  6. BREO ELLIPTA [Concomitant]
     Active Substance: FLUTICASONE FUROATE\VILANTEROL TRIFENATATE
  7. CARAFATE [Concomitant]
     Active Substance: SUCRALFATE
  8. COLACE [Concomitant]
     Active Substance: DOCUSATE SODIUM
  9. FLONASE ALLERGY RELIEF [Concomitant]
     Active Substance: FLUTICASONE PROPIONATE
  10. GABAPENTIN [Concomitant]
     Active Substance: GABAPENTIN
  11. GABAPENTIN [Concomitant]
     Active Substance: GABAPENTIN
  12. LASIX [Concomitant]
     Active Substance: FUROSEMIDE
  13. LOSARTAN [Concomitant]
     Active Substance: LOSARTAN
  14. ONDANSETRON [Concomitant]
     Active Substance: ONDANSETRON
  15. RESTASIS [Concomitant]
     Active Substance: CYCLOSPORINE
  16. TYLENOL 8HR [Concomitant]
     Active Substance: ACETAMINOPHEN
     Indication: Arthritis
  17. TYLENOL 8HR [Concomitant]
     Active Substance: ACETAMINOPHEN
  18. VOLTAREN [Concomitant]
     Active Substance: DICLOFENAC SODIUM
  19. ZYRTEC [Concomitant]
     Active Substance: CETIRIZINE HYDROCHLORIDE
  20. SINGULAIR [Concomitant]
     Active Substance: MONTELUKAST SODIUM
  21. METOPROLOL SUCCINATE [Concomitant]
     Active Substance: METOPROLOL SUCCINATE
  22. DEXILANT [Concomitant]
     Active Substance: DEXLANSOPRAZOLE
  23. CARDIZEM [Concomitant]
     Active Substance: DILTIAZEM HYDROCHLORIDE
  24. DILTIAZEM [Concomitant]
     Active Substance: DILTIAZEM

REACTIONS (19)
  - Illness [Unknown]
  - Malaise [Unknown]
  - Sinusitis [Unknown]
  - Depression [Unknown]
  - Initial insomnia [Unknown]
  - Somnolence [Unknown]
  - Diarrhoea [Unknown]
  - Arthritis [Unknown]
  - Product dose omission issue [Unknown]
  - Tooth infection [Unknown]
  - Malaise [Unknown]
  - Viral infection [Unknown]
  - Pyrexia [Unknown]
  - Asthma [Unknown]
  - Aphonia [Unknown]
  - Feeling abnormal [Unknown]
  - Insomnia [Unknown]
  - Asthma [Unknown]
  - Aphonia [Unknown]

NARRATIVE: CASE EVENT DATE: 20240701
